FAERS Safety Report 17042369 (Version 2)
Quarter: 2020Q4

REPORT INFORMATION
  Report Type: Spontaneous
  Country: US (occurrence: US)
  Receive Date: 20191118
  Receipt Date: 20201028
  Transmission Date: 20210113
  Serious: Yes (Other)
  Sender: FDA-Public Use
  Company Number: US-SA-2019SA317591

PATIENT

DRUGS (1)
  1. ZANTAC [Suspect]
     Active Substance: RANITIDINE HYDROCHLORIDE
     Dosage: 150-300 MG EVERY DAY
     Route: 048
     Dates: start: 201301, end: 201901

REACTIONS (7)
  - Injury [Unknown]
  - Lung neoplasm malignant [Unknown]
  - Prostate cancer [Unknown]
  - Bone cancer [Unknown]
  - Anxiety [Unknown]
  - Colon cancer [Unknown]
  - Colorectal cancer [Unknown]

NARRATIVE: CASE EVENT DATE: 201904
